FAERS Safety Report 7924826-2 (Version None)
Quarter: 2011Q4

REPORT INFORMATION
  Report Type: 
  Country: None (occurrence: None)
  Receive Date: 20111118
  Receipt Date: 20110328
  Transmission Date: 20120403
  Serious: No
  Sender: FDA-Public Use
  Company Number: US-AMGEN-USASP2011016398

PATIENT
  Sex: Female

DRUGS (1)
  1. ENBREL [Suspect]
     Indication: RHEUMATOID ARTHRITIS
     Route: 058
     Dates: start: 20060701

REACTIONS (5)
  - MALAISE [None]
  - RHEUMATOID ARTHRITIS [None]
  - FUNGAL INFECTION [None]
  - INCREASED TENDENCY TO BRUISE [None]
  - OROPHARYNGEAL PAIN [None]
